FAERS Safety Report 7349046-4 (Version None)
Quarter: 2011Q1

REPORT INFORMATION
  Report Type: 
  Country: None (occurrence: None)
  Receive Date: 20110314
  Receipt Date: 20110304
  Transmission Date: 20110831
  Serious: Yes (Hospitalization)
  Sender: FDA-Public Use
  Company Number: JP-NOVOPROD-324401

PATIENT
  Age: 55 Year
  Sex: Male

DRUGS (2)
  1. LANTUS [Concomitant]
     Dosage: UNK
     Route: 058
  2. NOVORAPID CHU PENFILL [Suspect]
     Indication: DIABETES MELLITUS
     Dosage: UNK
     Route: 058

REACTIONS (2)
  - ORTHOSTATIC HYPOTENSION [None]
  - NEUROPATHY PERIPHERAL [None]
